FAERS Safety Report 23193526 (Version 1)
Quarter: 2023Q4

REPORT INFORMATION
  Report Type: Report from Study
  Country: US (occurrence: US)
  Receive Date: 20231116
  Receipt Date: 20231116
  Transmission Date: 20240109
  Serious: Yes (Death, Other)
  Sender: FDA-Public Use
  Company Number: US-PFIZER INC-PV202300183363

PATIENT
  Age: 13 Year
  Sex: Male

DRUGS (6)
  1. FENTANYL CITRATE [Suspect]
     Active Substance: FENTANYL CITRATE
     Indication: Anaesthesia
     Dosage: UNK
     Route: 042
  2. THIOPENTAL SODIUM [Suspect]
     Active Substance: THIOPENTAL SODIUM
     Indication: Anaesthesia
     Dosage: UNK
     Route: 042
  3. ISOFLURANE [Suspect]
     Active Substance: ISOFLURANE
     Indication: Anaesthesia
     Dosage: 0.4-1.5%
     Route: 045
  4. PANCURONIUM [Suspect]
     Active Substance: PANCURONIUM
     Indication: Anaesthesia
     Dosage: UNK
     Route: 042
  5. NITROUS OXIDE [Suspect]
     Active Substance: NITROUS OXIDE
     Indication: Anaesthesia
     Dosage: UNK
  6. OXYGEN [Suspect]
     Active Substance: OXYGEN
     Indication: Anaesthesia
     Dosage: UNK

REACTIONS (2)
  - Bradycardia [Fatal]
  - Hypotension [Fatal]
